FAERS Safety Report 25401334 (Version 1)
Quarter: 2025Q2

REPORT INFORMATION
  Report Type: Spontaneous
  Country: US (occurrence: US)
  Receive Date: 20250605
  Receipt Date: 20250605
  Transmission Date: 20250717
  Serious: No
  Sender: BRISTOL-MYERS SQUIBB COMPANY
  Company Number: US-BRISTOL-MYERS SQUIBB COMPANY-2025-077876

PATIENT
  Sex: Male

DRUGS (1)
  1. SPRYCEL [Suspect]
     Active Substance: DASATINIB
     Indication: Chronic myeloid leukaemia

REACTIONS (5)
  - Haematuria [Unknown]
  - Pain [Unknown]
  - Gastrointestinal disorder [Unknown]
  - Blood creatine phosphokinase increased [Unknown]
  - Off label use [Unknown]

NARRATIVE: CASE EVENT DATE: 20240201
